FAERS Safety Report 6516104-3 (Version None)
Quarter: 2009Q4

REPORT INFORMATION
  Report Type: 
  Country: None (occurrence: None)
  Receive Date: 20091217
  Receipt Date: 20061002
  Transmission Date: 20100525
  Serious: Yes (Hospitalization, Other)
  Sender: FDA-Public Use
  Company Number: 2006-00904FE

PATIENT
  Sex: Female

DRUGS (2)
  1. MENOPUR [Suspect]
     Indication: INFERTILITY
  2. LOVENOX [Suspect]
     Indication: JUGULAR VEIN THROMBOSIS
     Dosage: (100 MG)
     Dates: start: 20060911, end: 20060928

REACTIONS (3)
  - ABORTION SPONTANEOUS [None]
  - EMBOLISM [None]
  - OVARIAN HYPERSTIMULATION SYNDROME [None]
